FAERS Safety Report 5232996-2 (Version None)
Quarter: 2007Q1

REPORT INFORMATION
  Report Type: 
  Country: None (occurrence: None)
  Receive Date: 20070207
  Receipt Date: 20070125
  Transmission Date: 20070707
  Serious: Yes (Hospitalization)
  Sender: FDA-Public Use
  Company Number: US-SHR-US-2006-038191

PATIENT
  Age: 57 Year
  Sex: Female
  Weight: 72.109 kg

DRUGS (8)
  1. BETASERON [Suspect]
     Indication: RELAPSING-REMITTING MULTIPLE SCLEROSIS
     Dosage: 9.6 MIU, EVERY 2D
     Route: 058
  2. BETASERON [Suspect]
     Dosage: 8 MIU, EVERY 2D
     Route: 058
     Dates: start: 20020101
  3. BETASERON [Suspect]
     Dosage: 8 MIU, EVERY 2D
     Route: 058
     Dates: start: 20010606
  4. HYDROCHLOROTHIAZIDE [Concomitant]
     Dosage: 12.5 MG/D, UNK
     Route: 048
     Dates: start: 20050101
  5. ZESTRIL [Concomitant]
     Indication: HYPERTENSION
     Dosage: 2.5 MG/D, UNK
     Route: 048
     Dates: start: 20050101
  6. ELAVIL [Concomitant]
     Indication: SEDATIVE THERAPY
     Dosage: 25 MG/D, BED T.
     Route: 048
     Dates: start: 20050101
  7. ELAVIL [Concomitant]
     Dosage: 50 MG, UNK
  8. PREMARIN [Concomitant]
     Dosage: .625 MG/D, UNK
     Route: 048
     Dates: start: 20050101

REACTIONS (2)
  - CEREBRAL INFARCTION [None]
  - MULTIPLE SCLEROSIS [None]
